FAERS Safety Report 4411985-1 (Version None)
Quarter: 2004Q3

REPORT INFORMATION
  Report Type: 
  Country: None (occurrence: None)
  Receive Date: 20040730
  Receipt Date: 20040715
  Transmission Date: 20050211
  Serious: Yes (Other)
  Sender: FDA-Public Use
  Company Number: BR-ROCHE-374569

PATIENT
  Age: 63 Year
  Sex: Female

DRUGS (5)
  1. PEGASYS [Suspect]
     Route: 058
     Dates: start: 20030517, end: 20040517
  2. PEGASYS [Suspect]
     Route: 058
     Dates: start: 20040518, end: 20040715
  3. RIBAVIRIN [Suspect]
     Route: 048
     Dates: start: 20030517
  4. RIBAVIRIN [Suspect]
     Route: 048
     Dates: end: 20040715
  5. SYNTHROID [Concomitant]
     Indication: HYPOTHYROIDISM
     Route: 048

REACTIONS (5)
  - DEPRESSION [None]
  - DRUG INEFFECTIVE [None]
  - HAEMOLYTIC ANAEMIA [None]
  - RETINAL DETACHMENT [None]
  - THERAPEUTIC RESPONSE DECREASED [None]
